FAERS Safety Report 19165462 (Version 1)
Quarter: 2021Q2

REPORT INFORMATION
  Report Type: Spontaneous
  Country: US (occurrence: US)
  Receive Date: 20210421
  Receipt Date: 20210421
  Transmission Date: 20210717
  Serious: Yes (Hospitalization)
  Sender: FDA-Public Use
  Company Number: None

PATIENT
  Age: 93 Year
  Sex: Female
  Weight: 43.1 kg

DRUGS (1)
  1. BAMLANIVIMAB. [Suspect]
     Active Substance: BAMLANIVIMAB
     Indication: COVID-19
     Route: 041
     Dates: start: 20210313, end: 20210313

REACTIONS (3)
  - Pallor [None]
  - Erythema [None]
  - Injection site haemorrhage [None]

NARRATIVE: CASE EVENT DATE: 20210313
